FAERS Safety Report 7111941-9 (Version None)
Quarter: 2010Q4

REPORT INFORMATION
  Report Type: 
  Country: None (occurrence: None)
  Receive Date: 20101119
  Receipt Date: 20101108
  Transmission Date: 20110411
  Serious: Yes (Hospitalization, Other)
  Sender: FDA-Public Use
  Company Number: US-SHIRE-SPV1-2010-01950

PATIENT
  Sex: Male
  Weight: 90.703 kg

DRUGS (2)
  1. MAS (MIXED AMPHETAMINE SALTS) [Suspect]
     Indication: ATTENTION DEFICIT/HYPERACTIVITY DISORDER
     Dosage: 30 MG, 4X/DAY:QID
     Route: 048
  2. XANAX [Concomitant]
     Indication: ANXIETY
     Dosage: 1 MG, 2X/DAY:BID
     Route: 048

REACTIONS (6)
  - CRIME [None]
  - DRUG ABUSE [None]
  - DYSURIA [None]
  - IMPRISONMENT [None]
  - OVERDOSE [None]
  - SUICIDAL IDEATION [None]
